FAERS Safety Report 19029154 (Version 3)
Quarter: 2021Q2

REPORT INFORMATION
  Report Type: Spontaneous
  Country: US (occurrence: US)
  Receive Date: 20210318
  Receipt Date: 20210420
  Transmission Date: 20210717
  Serious: Yes (Hospitalization)
  Sender: FDA-Public Use
  Company Number: US-ALLERGAN-2111157US

PATIENT
  Sex: Female

DRUGS (3)
  1. SAVELLA [Concomitant]
     Active Substance: MILNACIPRAN HYDROCHLORIDE
     Indication: MYALGIA
  2. METHOCARBAMOL. [Concomitant]
     Active Substance: METHOCARBAMOL
     Indication: MYALGIA
  3. BOTOX [Suspect]
     Active Substance: ONABOTULINUMTOXINA
     Indication: TORTICOLLIS
     Dosage: 300 UNITS, SINGLE
     Dates: start: 20210223, end: 20210223

REACTIONS (10)
  - Painful respiration [Unknown]
  - Wrong technique in product usage process [Unknown]
  - Lung perforation [Recovered/Resolved]
  - Pneumothorax [Recovered/Resolved]
  - Lung hyperinflation [Not Recovered/Not Resolved]
  - Palpitations [Unknown]
  - Extrasystoles [Unknown]
  - Electrocardiogram PR shortened [Unknown]
  - Sinus tachycardia [Unknown]
  - Dyspnoea [Unknown]

NARRATIVE: CASE EVENT DATE: 20210223
